FAERS Safety Report 8018017-7 (Version None)
Quarter: 2012Q1

REPORT INFORMATION
  Report Type: 
  Country: None (occurrence: None)
  Receive Date: 20120103
  Receipt Date: 20111228
  Transmission Date: 20120608
  Serious: Yes (Death, Hospitalization)
  Sender: FDA-Public Use
  Company Number: CH-JNJFOC-20111212139

PATIENT
  Age: 72 Year
  Sex: Female

DRUGS (5)
  1. REMICADE [Suspect]
     Indication: CROHN'S DISEASE
     Route: 042
     Dates: start: 20111128, end: 20111128
  2. PREDNISONE TAB [Suspect]
     Indication: CROHN'S DISEASE
     Route: 065
  3. METOPROLOL TARTRATE [Concomitant]
     Route: 065
  4. NEXIUM [Concomitant]
     Route: 065
  5. NOVOLOG MIX 70/30 [Concomitant]
     Route: 058

REACTIONS (2)
  - MYOCARDIAL INFARCTION [None]
  - SEPTIC SHOCK [None]
